FAERS Safety Report 15756695 (Version 1)
Quarter: 2018Q4

REPORT INFORMATION
  Report Type: Spontaneous
  Country: US (occurrence: US)
  Receive Date: 20181224
  Receipt Date: 20181224
  Transmission Date: 20190205
  Serious: Yes (Other)
  Sender: FDA-Public Use
  Company Number: US-NOVOPROD-639051

PATIENT
  Age: 30 Year
  Sex: Male

DRUGS (5)
  1. FENTANYL. [Concomitant]
     Active Substance: FENTANYL
     Indication: BACK PAIN
     Dosage: 25MCG PATCH
  2. NOVOLIN R [Suspect]
     Active Substance: INSULIN HUMAN
     Indication: TYPE 1 DIABETES MELLITUS
     Dosage: 6 -8U FOR CARB RATIO OF 15:1
     Route: 065
  3. LEVEMIR [Suspect]
     Active Substance: INSULIN DETEMIR
     Indication: TYPE 1 DIABETES MELLITUS
     Dosage: 22 U
     Route: 058
     Dates: start: 20181205
  4. NOVOLIN R [Suspect]
     Active Substance: INSULIN HUMAN
     Dosage: 5-6 U
     Route: 065
     Dates: start: 20181208
  5. BACLOFEN. [Concomitant]
     Active Substance: BACLOFEN
     Indication: HYPOTONIA
     Dosage: 20 MG

REACTIONS (20)
  - Tremor [Unknown]
  - Confusional state [Unknown]
  - Feeling hot [Not Recovered/Not Resolved]
  - Pain [Not Recovered/Not Resolved]
  - Feeling of body temperature change [Unknown]
  - Tension [Unknown]
  - Insomnia [Unknown]
  - Discomfort [Unknown]
  - Blood glucose decreased [Recovered/Resolved]
  - Blood glucose increased [Recovered/Resolved]
  - Diarrhoea [Unknown]
  - Muscle twitching [Unknown]
  - Anxiety [Unknown]
  - Blood glucose decreased [Recovered/Resolved]
  - Blood glucose increased [Unknown]
  - Suicidal ideation [Unknown]
  - Restlessness [Unknown]
  - Feeling abnormal [Unknown]
  - Expired product administered [Unknown]
  - Blood glucose increased [Recovered/Resolved]

NARRATIVE: CASE EVENT DATE: 20181205
